FAERS Safety Report 9380316 (Version 2)
Quarter: 2013Q4

REPORT INFORMATION
  Report Type: Spontaneous
  Country: JP (occurrence: JP)
  Receive Date: 20130702
  Receipt Date: 20131004
  Transmission Date: 20140711
  Serious: Yes (Hospitalization)
  Sender: FDA-Public Use
  Company Number: JP-BRISTOL-MYERS SQUIBB COMPANY-19064542

PATIENT
  Age: 71 Year
  Sex: Male
  Weight: 64 kg

DRUGS (9)
  1. ERBITUX SOLN FOR INF 5MG/ML [Suspect]
     Indication: HYPOPHARYNGEAL CANCER
     Dosage: ON 13MAY13:400MG/M2?250MG/M2 ON 20MAY-9JUL13:50DAYS?3 INF 27MAY13?4:7JUN13?5:10JUN13?8:9JUL13
     Route: 041
     Dates: start: 20130513
  2. ULGUT [Concomitant]
     Indication: GASTRITIS
     Route: 048
  3. FAMOTIDINE TABS [Concomitant]
     Indication: GASTRITIS
     Route: 048
  4. LIVACT [Concomitant]
     Indication: CIRRHOSIS ALCOHOLIC
     Route: 048
  5. URSODEOXYCHOLIC ACID [Concomitant]
     Indication: CIRRHOSIS ALCOHOLIC
     Route: 048
  6. TAURINE [Concomitant]
     Indication: CIRRHOSIS ALCOHOLIC
     Route: 048
  7. LECITHIN [Concomitant]
     Indication: CIRRHOSIS ALCOHOLIC
     Route: 048
  8. BROTIZOLAM [Concomitant]
     Indication: INSOMNIA
     Route: 048
     Dates: start: 20130510
  9. MAGMITT [Concomitant]
     Indication: CONSTIPATION
     Route: 048
     Dates: start: 20130516

REACTIONS (2)
  - Radiation mucositis [Not Recovered/Not Resolved]
  - Amylase increased [Recovered/Resolved]
